FAERS Safety Report 8011572-2 (Version None)
Quarter: 2011Q4

REPORT INFORMATION
  Report Type: 
  Country: None (occurrence: None)
  Receive Date: 20111228
  Receipt Date: 20111220
  Transmission Date: 20120403
  Serious: Yes (Other)
  Sender: FDA-Public Use
  Company Number: US-BAYER-2011-027318

PATIENT
  Age: 26 Year
  Sex: Female

DRUGS (2)
  1. ORTHO TRI-CYCLEN [Concomitant]
  2. YAZ [Suspect]
     Indication: CONTRACEPTION
     Dosage: UNK
     Dates: start: 20040101, end: 20090101

REACTIONS (3)
  - EMOTIONAL DISTRESS [None]
  - INJURY [None]
  - CHOLECYSTITIS [None]
